FAERS Safety Report 8613939-8 (Version None)
Quarter: 2012Q3

REPORT INFORMATION
  Report Type: 
  Country: None (occurrence: None)
  Receive Date: 20120823
  Receipt Date: 20120820
  Transmission Date: 20120928
  Serious: No
  Sender: FDA-Public Use
  Company Number: US-PFIZER INC-2012204000

PATIENT
  Sex: Female

DRUGS (4)
  1. TIKOSYN [Interacting]
     Dosage: 125 UG, UNK
  2. LASIX [Interacting]
  3. TIKOSYN [Suspect]
     Indication: EXTRASYSTOLES
     Dosage: 250 UG, UNK
  4. ATIVAN [Interacting]

REACTIONS (3)
  - ANXIETY [None]
  - TREMOR [None]
  - DRUG INTERACTION [None]
